FAERS Safety Report 6354342-3 (Version None)
Quarter: 2009Q3

REPORT INFORMATION
  Report Type: 
  Country: None (occurrence: None)
  Receive Date: 20090914
  Receipt Date: 20070913
  Transmission Date: 20100115
  Serious: Yes (Other)
  Sender: FDA-Public Use
  Company Number: US-ASTRAZENECA-2006UW25652

PATIENT
  Age: 59 Year
  Sex: Male
  Weight: 163.3 kg

DRUGS (17)
  1. SEROQUEL [Suspect]
     Indication: DEPRESSION
     Dosage: 400 MG TO 600 MG
     Route: 048
     Dates: start: 20010101, end: 20050101
  2. SEROQUEL [Suspect]
     Dosage: 50-300 MG
     Route: 048
     Dates: start: 20020117, end: 20050501
  3. BUSPAR [Concomitant]
     Indication: ANXIETY DISORDER
     Route: 048
     Dates: start: 20010309
  4. BUSPAR [Concomitant]
     Indication: NARCISSISTIC PERSONALITY DISORDER
     Route: 048
     Dates: start: 20010309
  5. STRATTERA [Concomitant]
  6. REMERON [Concomitant]
  7. LIPITOR [Concomitant]
     Dates: start: 20050131
  8. ACCUPRIL [Concomitant]
     Dates: start: 20050131
  9. METFORMIN HCL [Concomitant]
     Dates: start: 20050131
  10. HYDROCHLOROTHIAZIDE [Concomitant]
     Dates: start: 20050131
  11. ASPIRIN [Concomitant]
     Dates: start: 20050131
  12. LOPID [Concomitant]
     Indication: BLOOD TRIGLYCERIDES INCREASED
     Dates: start: 20050506
  13. STRATTERA [Concomitant]
     Route: 048
     Dates: start: 20050508
  14. BENADRYL [Concomitant]
     Indication: PRURITUS
     Route: 048
     Dates: start: 20010309
  15. LOSARTAN [Concomitant]
     Indication: HYPERTENSION
     Dates: start: 20010309
  16. ZOLOFT [Concomitant]
     Indication: ANXIETY DISORDER
     Dates: start: 20010309
  17. ZOLOFT [Concomitant]
     Indication: NARCISSISTIC PERSONALITY DISORDER
     Dates: start: 20010309

REACTIONS (5)
  - DIABETES MELLITUS [None]
  - DIABETIC NEUROPATHY [None]
  - GLUCOSE TOLERANCE IMPAIRED [None]
  - HYPERGLYCAEMIA [None]
  - HYPOGLYCAEMIA [None]
